FAERS Safety Report 8840093 (Version 1)
Quarter: 2012Q4

REPORT INFORMATION
  Report Type: Spontaneous
  Country: US (occurrence: None)
  Receive Date: 20121011
  Receipt Date: 20121011
  Transmission Date: 20130627
  Serious: Yes (Death)
  Sender: FDA-Public Use
  Company Number: 2012-516

PATIENT
  Age: 19 Year
  Sex: Male

DRUGS (2)
  1. FAZACLO [Suspect]
     Indication: SCHIZOPHRENIA
     Dosage: 300-400 mg, qd, Oral
     Route: 048
     Dates: start: 20120217, end: 201209
  2. DIVALPROEX SODIUM (VALPROATE SEMISODIUM) [Concomitant]

REACTIONS (2)
  - Completed suicide [None]
  - Gun shot wound [None]
